FAERS Safety Report 21959451 (Version 1)
Quarter: 2023Q1

REPORT INFORMATION
  Report Type: Spontaneous
  Country: TR (occurrence: TR)
  Receive Date: 20230206
  Receipt Date: 20230206
  Transmission Date: 20230417
  Serious: Yes (Hospitalization)
  Sender: FDA-Public Use
  Company Number: TR-TAKEDA-2023TUS012506

PATIENT
  Age: 12 Year
  Sex: Female

DRUGS (3)
  1. COLCHICINE [Suspect]
     Active Substance: COLCHICINE
     Indication: Familial mediterranean fever
     Dosage: 2 MILLIGRAM, QD
     Route: 065
     Dates: start: 201701
  2. COLCHICINE [Suspect]
     Active Substance: COLCHICINE
     Indication: Proteinuria
     Dosage: UNK
     Route: 065
  3. MESALAMINE [Concomitant]
     Active Substance: MESALAMINE
     Indication: Colitis

REACTIONS (1)
  - Drug resistance [Unknown]
